FAERS Safety Report 4527443-X (Version None)
Quarter: 2004Q4

REPORT INFORMATION
  Report Type: 
  Country: None (occurrence: None)
  Receive Date: 20041215
  Receipt Date: 20041207
  Transmission Date: 20050328
  Serious: Yes (Disabling, Other)
  Sender: FDA-Public Use
  Company Number: 200421943GDDC

PATIENT
  Age: 29 Year
  Sex: Male

DRUGS (1)
  1. METRONIDAZOLE [Suspect]
     Indication: INFECTION PROPHYLAXIS
     Dosage: DOSE: 1 TABLET
     Route: 048
     Dates: start: 20040924, end: 20040928

REACTIONS (12)
  - DYSPHAGIA [None]
  - DYSPNOEA [None]
  - GINGIVAL ULCERATION [None]
  - INFLAMMATION [None]
  - LETHARGY [None]
  - NASOPHARYNGEAL DISORDER [None]
  - PHARYNGEAL ERYTHEMA [None]
  - PHARYNGEAL ULCERATION [None]
  - PHARYNGOLARYNGEAL PAIN [None]
  - PRODUCTIVE COUGH [None]
  - PYREXIA [None]
  - TONGUE ULCERATION [None]
